FAERS Safety Report 16986458 (Version 1)
Quarter: 2019Q4

REPORT INFORMATION
  Report Type: Spontaneous
  Country: US (occurrence: US)
  Receive Date: 20191101
  Receipt Date: 20191101
  Transmission Date: 20200122
  Serious: Yes (Hospitalization, Other)
  Sender: FDA-Public Use
  Company Number: NVSC2019US022083

PATIENT
  Sex: Male

DRUGS (2)
  1. TASIGNA [Suspect]
     Active Substance: NILOTINIB
     Indication: CYTOGENETIC ANALYSIS ABNORMAL
  2. TASIGNA [Suspect]
     Active Substance: NILOTINIB
     Indication: CHRONIC MYELOID LEUKAEMIA
     Route: 065

REACTIONS (12)
  - Weight decreased [Unknown]
  - Red blood cell count decreased [Unknown]
  - Atrioventricular block [Unknown]
  - Vision blurred [Unknown]
  - Vomiting [Unknown]
  - Blood count abnormal [Unknown]
  - Atrial fibrillation [Unknown]
  - Abscess [Unknown]
  - Mental status changes [Unknown]
  - Thirst [Unknown]
  - Feeling abnormal [Unknown]
  - Fluid retention [Unknown]
